FAERS Safety Report 5645377-4 (Version None)
Quarter: 2008Q1

REPORT INFORMATION
  Report Type: 
  Country: None (occurrence: None)
  Receive Date: 20080229
  Receipt Date: 20080221
  Transmission Date: 20080703
  Serious: Yes (Hospitalization)
  Sender: FDA-Public Use
  Company Number: JP-MERCK-0801USA03481

PATIENT
  Age: 43 Year
  Sex: Male

DRUGS (10)
  1. PEPCID RPD [Suspect]
     Indication: GASTROENTERITIS
     Route: 048
     Dates: start: 20070331, end: 20070403
  2. CAFFEINE AND ACETAMINOPHEN AND PROMETHAZINE METHYLENEDISALICYLATE AND [Suspect]
     Indication: PHARYNGITIS
     Route: 048
     Dates: start: 20070329, end: 20070331
  3. CELESTAMINE TAB [Concomitant]
     Indication: RHINITIS ALLERGIC
     Route: 048
     Dates: start: 20070329, end: 20070330
  4. FLUNASE (FLUTICASONE PROPIONATE) [Concomitant]
     Indication: RHINITIS ALLERGIC
     Dates: start: 20070329, end: 20070331
  5. FLOMOX [Concomitant]
     Indication: PHARYNGITIS
     Route: 048
     Dates: start: 20070329, end: 20070331
  6. BAYNAS [Concomitant]
     Indication: RHINITIS ALLERGIC
     Route: 048
     Dates: start: 20070329, end: 20070331
  7. ALBUMIN TANNATE [Concomitant]
     Indication: GASTROENTERITIS
     Route: 048
     Dates: start: 20070331, end: 20070403
  8. ADSORBIN [Concomitant]
     Indication: GASTROENTERITIS
     Route: 048
     Dates: start: 20070331, end: 20070403
  9. BIOFERMIN [Concomitant]
     Indication: GASTROENTERITIS
     Route: 048
     Dates: start: 20070331, end: 20070403
  10. LEVOGLUTAMIDE AND SODIUM GUALENATE [Concomitant]
     Indication: GASTROENTERITIS
     Route: 048
     Dates: start: 20070331, end: 20070403

REACTIONS (1)
  - LIVER DISORDER [None]
